FAERS Safety Report 5007085-2 (Version None)
Quarter: 2006Q1

REPORT INFORMATION
  Report Type: 
  Country: None (occurrence: None)
  Receive Date: 20060330
  Receipt Date: 20060124
  Transmission Date: 20060701
  Serious: Yes (Other)
  Sender: FDA-Public Use
  Company Number: 2005136433

PATIENT
  Age: 68 Year
  Sex: Female
  Weight: 83.9154 kg

DRUGS (4)
  1. ZMAX [Suspect]
     Indication: VIRAL INFECTION
     Dosage: (DAILY), ORAL
     Route: 048
     Dates: start: 20050915, end: 20050915
  2. ZITHROMAX [Suspect]
     Indication: ILL-DEFINED DISORDER
  3. PREDNISONE TAB [Suspect]
     Indication: DERMATITIS ALLERGIC
     Dates: start: 20050101
  4. IBUPROFEN [Concomitant]

REACTIONS (2)
  - PARAESTHESIA [None]
  - URTICARIA [None]
